FAERS Safety Report 4596447-3 (Version None)
Quarter: 2005Q1

REPORT INFORMATION
  Report Type: 
  Country: None (occurrence: None)
  Receive Date: 20050228
  Receipt Date: 20050211
  Transmission Date: 20050727
  Serious: Yes (Other)
  Sender: FDA-Public Use
  Company Number: 2004BI001423

PATIENT
  Age: 56 Year
  Sex: Male

DRUGS (11)
  1. AVONEX [Suspect]
     Indication: MULTIPLE SCLEROSIS
     Dosage: 30 UG; QW; IM
     Route: 030
     Dates: start: 19970101
  2. AVONEX [Suspect]
     Indication: MULTIPLE SCLEROSIS
     Dosage: 30 UG; IM
     Route: 030
  3. ACCUPRIL [Concomitant]
  4. COREG [Concomitant]
  5. ASPIRIN [Concomitant]
  6. PROVIGIL [Concomitant]
  7. VITAMIN B-12 [Concomitant]
  8. VIAGRA [Concomitant]
  9. GARLIC [Concomitant]
  10. BEE POLLEN [Concomitant]
  11. WELLBUTRIN [Concomitant]

REACTIONS (3)
  - BRADYCARDIA [None]
  - CARDIAC FAILURE CHRONIC [None]
  - CONDITION AGGRAVATED [None]
